FAERS Safety Report 9129457 (Version 1)
Quarter: 2013Q1

REPORT INFORMATION
  Report Type: Spontaneous
  Country: US (occurrence: US)
  Receive Date: 20130228
  Receipt Date: 20130228
  Transmission Date: 20140127
  Serious: No
  Sender: FDA-Public Use
  Company Number: US-ASTRAZENECA-2013SE11010

PATIENT
  Age: 40 Year
  Sex: Female
  Weight: 81.6 kg

DRUGS (4)
  1. NEXIUM [Suspect]
     Indication: GASTROOESOPHAGEAL REFLUX DISEASE
     Route: 048
     Dates: start: 2003, end: 201208
  2. OMEPRAZOLE [Suspect]
     Indication: GASTROOESOPHAGEAL REFLUX DISEASE
     Route: 048
     Dates: start: 201208
  3. EXCEDRIN [Concomitant]
     Indication: HEADACHE
  4. ALLEVE [Concomitant]
     Indication: HEADACHE

REACTIONS (3)
  - Therapeutic response unexpected [Unknown]
  - Intentional drug misuse [Unknown]
  - Drug ineffective [Unknown]
